FAERS Safety Report 24197326 (Version 1)
Quarter: 2024Q3

REPORT INFORMATION
  Report Type: Spontaneous
  Country: CZ (occurrence: CZ)
  Receive Date: 20240810
  Receipt Date: 20240810
  Transmission Date: 20241017
  Serious: Yes (Other)
  Sender: TEVA
  Company Number: None

PATIENT
  Age: 30 Year
  Sex: Female
  Weight: 56 kg

DRUGS (1)
  1. DOXYCYCLINE [Suspect]
     Active Substance: DOXYCYCLINE\DOXYCYCLINE HYCLATE
     Indication: Ureaplasma infection
     Dosage: 2X PER DAY (ONE PILL IN THE MORNING, ONE PILL IN THE EVENING)?ALL PILLS WERE TAKEN
     Route: 048
     Dates: start: 20240621, end: 20240630

REACTIONS (4)
  - Mental disorder [Recovering/Resolving]
  - Anxiety [Recovering/Resolving]
  - Feeling of despair [Recovering/Resolving]
  - Depersonalisation/derealisation disorder [Recovering/Resolving]

NARRATIVE: CASE EVENT DATE: 20240628
